FAERS Safety Report 25461012 (Version 1)
Quarter: 2025Q2

REPORT INFORMATION
  Report Type: Report from Study
  Country: US (occurrence: US)
  Receive Date: 20250620
  Receipt Date: 20250620
  Transmission Date: 20250717
  Serious: No
  Sender: MALLINCKRODT
  Company Number: US-MALLINCKRODT-MNK202503227

PATIENT
  Age: 44 Year
  Sex: Female

DRUGS (1)
  1. CORTICOTROPIN [Suspect]
     Active Substance: CORTICOTROPIN
     Indication: Uveitis
     Route: 058
     Dates: start: 20250501

REACTIONS (9)
  - Pain [Unknown]
  - Nerve injury [Unknown]
  - Injection site erythema [Unknown]
  - Injection site swelling [Unknown]
  - Injection site warmth [Unknown]
  - Injection site bruising [Unknown]
  - Injection site pruritus [Unknown]
  - Injection site discolouration [Unknown]
  - Injection site discharge [Unknown]

NARRATIVE: CASE EVENT DATE: 20250501
